FAERS Safety Report 15786887 (Version 2)
Quarter: 2019Q2

REPORT INFORMATION
  Report Type: Spontaneous
  Country: DE (occurrence: DE)
  Receive Date: 20190103
  Receipt Date: 20190430
  Transmission Date: 20190711
  Serious: Yes (Hospitalization, Other)
  Sender: FDA-Public Use
  Company Number: DE-MYLANLABS-2018M1097365

PATIENT
  Age: 37 Year
  Sex: Female

DRUGS (10)
  1. LACOSAMIDE. [Suspect]
     Active Substance: LACOSAMIDE
     Indication: PSYCHIATRIC SYMPTOM
     Dosage: 200 MILLIGRAM, BID
     Route: 065
  2. VALPROIC ACID. [Concomitant]
     Active Substance: VALPROIC ACID
     Indication: FOCAL DYSCOGNITIVE SEIZURES
     Dosage: UNKNOWN DOSE
  3. VIMPAT [Suspect]
     Active Substance: LACOSAMIDE
     Indication: FOCAL DYSCOGNITIVE SEIZURES
     Dosage: UNKNOWN DOSE
  4. RISPERIDONE. [Concomitant]
     Active Substance: RISPERIDONE
     Indication: PRODUCT USED FOR UNKNOWN INDICATION
     Dosage: UNKNOWN DOSE
  5. VALPROIC ACID. [Concomitant]
     Active Substance: VALPROIC ACID
     Indication: SIMPLE PARTIAL SEIZURES
  6. LEVETIRACETAM. [Suspect]
     Active Substance: LEVETIRACETAM
     Indication: FOCAL DYSCOGNITIVE SEIZURES
     Dosage: UNKNOWN DOSE
     Route: 065
  7. LEVETIRACETAM. [Suspect]
     Active Substance: LEVETIRACETAM
     Indication: SIMPLE PARTIAL SEIZURES
  8. METHYLPREDNISOLONE. [Concomitant]
     Active Substance: METHYLPREDNISOLONE
     Indication: PRODUCT USED FOR UNKNOWN INDICATION
     Dosage: 1000 MG/DAY
  9. QUETIAPINE. [Concomitant]
     Active Substance: QUETIAPINE
     Indication: PRODUCT USED FOR UNKNOWN INDICATION
     Dosage: UNKNOWN DOSE
  10. VIMPAT [Suspect]
     Active Substance: LACOSAMIDE
     Indication: SIMPLE PARTIAL SEIZURES
     Dosage: 200 MILLIGRAM,,2X200 MG,
     Route: 065

REACTIONS (9)
  - Epilepsy [Recovered/Resolved]
  - Memory impairment [Not Recovered/Not Resolved]
  - Affect lability [Recovered/Resolved]
  - Fatigue [Recovered/Resolved]
  - Status epilepticus [Recovered/Resolved]
  - Psychotic disorder [Recovered/Resolved]
  - Dysarthria [Recovered/Resolved]
  - Malaise [Recovered/Resolved]
  - Somnolence [Recovered/Resolved]
